FAERS Safety Report 7943113-X (Version None)
Quarter: 2011Q4

REPORT INFORMATION
  Report Type: 
  Country: None (occurrence: None)
  Receive Date: 20111128
  Receipt Date: 20111115
  Transmission Date: 20120403
  Serious: Yes (Hospitalization, Other)
  Sender: FDA-Public Use
  Company Number: PHFR2011GB05447

PATIENT
  Sex: Female

DRUGS (12)
  1. CLOTRIMAZOLE [Concomitant]
     Route: 061
  2. CLOPIDOGREL [Concomitant]
     Dosage: 75 MG/DAY
  3. LANSOPRAZOLE [Concomitant]
     Dosage: 30 MG/DAY
  4. SIMVASTATIN [Concomitant]
     Dosage: 40 MG/DAY
     Route: 048
  5. THIAMINE HCL [Concomitant]
     Dosage: 200 MG/DAY
     Route: 048
  6. CLOZARIL [Suspect]
     Indication: SCHIZOPHRENIA
     Dosage: 325 MG/DAY
     Route: 048
     Dates: start: 19980817
  7. OXYBUTYNIN [Concomitant]
     Dosage: 20 MG/DAY
     Route: 048
  8. ACETAMINOPHEN [Concomitant]
     Dosage: 4 G/DAY
  9. DIPROBASE CREAM [Concomitant]
     Route: 061
  10. FLAVOXATE [Concomitant]
     Dosage: 600 MG/DAY
     Route: 048
  11. BACLOFEN [Concomitant]
     Dosage: 20 MG, UNK
  12. INSULATARD NPH HUMAN [Concomitant]
     Dosage: 30 IU/DAY
     Route: 058

REACTIONS (4)
  - LYMPHOMA [None]
  - METASTASIS [None]
  - PNEUMONIA ASPIRATION [None]
  - LOWER RESPIRATORY TRACT INFECTION [None]
